FAERS Safety Report 23876819 (Version 1)
Quarter: 2024Q2

REPORT INFORMATION
  Report Type: Spontaneous
  Country: HK (occurrence: HK)
  Receive Date: 20240521
  Receipt Date: 20240521
  Transmission Date: 20240716
  Serious: Yes (Other)
  Sender: FDA-Public Use
  Company Number: HK-009507513-2405HKG005581

PATIENT

DRUGS (1)
  1. JANUMET XR [Suspect]
     Active Substance: METFORMIN HYDROCHLORIDE\SITAGLIPTIN PHOSPHATE
     Dosage: STRENGTH: 100/1000 MG
     Route: 048

REACTIONS (2)
  - Diabetes mellitus inadequate control [Unknown]
  - Product residue present [Unknown]
